FAERS Safety Report 5446072-7 (Version None)
Quarter: 2007Q3

REPORT INFORMATION
  Report Type: 
  Country: None (occurrence: None)
  Receive Date: 20070907
  Receipt Date: 20070824
  Transmission Date: 20080115
  Serious: Yes (Hospitalization, Other)
  Sender: FDA-Public Use
  Company Number: US-BRISTOL-MYERS SQUIBB COMPANY-13651641

PATIENT
  Age: 62 Year
  Sex: Male

DRUGS (14)
  1. CISPLATIN [Suspect]
     Indication: METASTATIC GASTRIC CANCER
     Route: 041
     Dates: start: 20070111, end: 20070111
  2. 5-FU [Suspect]
     Indication: METASTATIC GASTRIC CANCER
     Route: 041
     Dates: start: 20070111, end: 20070115
  3. DEXAMETHASONE 0.5MG TAB [Suspect]
     Indication: PROPHYLAXIS
     Route: 048
     Dates: start: 20070112, end: 20070114
  4. DEXAMETHASONE 0.5MG TAB [Suspect]
     Dosage: DEXAMETHASONE 10 MG IV WAS GIVEN ON 11-JAN-2007.
     Route: 048
     Dates: start: 20070112, end: 20070114
  5. EMEND [Concomitant]
     Indication: PREMEDICATION
     Route: 048
     Dates: start: 20070111, end: 20070113
  6. EMEND [Concomitant]
     Indication: PROPHYLAXIS
     Route: 048
     Dates: start: 20070111, end: 20070113
  7. LORAZEPAM [Concomitant]
     Indication: CHEMOTHERAPY
     Route: 042
     Dates: start: 20070111, end: 20070111
  8. ONDANSETRON [Concomitant]
     Indication: PREMEDICATION
     Route: 042
     Dates: start: 20070111, end: 20070111
  9. ONDANSETRON [Concomitant]
     Indication: CHEMOTHERAPY
     Route: 042
     Dates: start: 20070111, end: 20070111
  10. COMPAZINE [Concomitant]
     Indication: VOMITING
     Route: 048
     Dates: start: 20070111
  11. COMPAZINE [Concomitant]
     Indication: NAUSEA
     Route: 048
     Dates: start: 20070111
  12. ZOFRAN [Concomitant]
     Indication: NAUSEA
     Route: 048
     Dates: start: 20070111
  13. ZOFRAN [Concomitant]
     Indication: VOMITING
     Route: 048
     Dates: start: 20070111
  14. HYDROCODONE BITARTRATE [Concomitant]
     Indication: PAIN
     Dosage: DOSE VALUE = 5/500 MG
     Route: 048
     Dates: start: 20070102

REACTIONS (6)
  - HYPERBILIRUBINAEMIA [None]
  - HYPERGLYCAEMIA [None]
  - JAUNDICE CHOLESTATIC [None]
  - LOBAR PNEUMONIA [None]
  - METABOLIC ACIDOSIS [None]
  - RENAL FAILURE [None]
